FAERS Safety Report 5338398-2 (Version None)
Quarter: 2007Q2

REPORT INFORMATION
  Report Type: 
  Country: None (occurrence: None)
  Receive Date: 20070530
  Receipt Date: 20070523
  Transmission Date: 20071010
  Serious: Yes (Hospitalization, Other)
  Sender: FDA-Public Use
  Company Number: US-ELI_LILLY_AND_COMPANY-US200705005979

PATIENT
  Age: 54 Year
  Sex: Female

DRUGS (3)
  1. BYETTA [Suspect]
     Indication: DIABETES MELLITUS NON-INSULIN-DEPENDENT
     Dosage: 5 UG, EACH EVENING
     Route: 058
     Dates: start: 20060501
  2. LANTUS [Concomitant]
     Dosage: UNK, OTHER
     Route: 065
  3. NOVOLOG [Concomitant]
     Dosage: UNK, AS NEEDED
     Route: 065

REACTIONS (2)
  - GASTRIC INFECTION [None]
  - NEPHROLITHIASIS [None]
